FAERS Safety Report 8886332 (Version 3)
Quarter: 2013Q2

REPORT INFORMATION
  Report Type: Spontaneous
  Country: US (occurrence: US)
  Receive Date: 20121105
  Receipt Date: 20130514
  Transmission Date: 20140414
  Serious: No
  Sender: FDA-Public Use
  Company Number: US-ASTRAZENECA-2012SE25028

PATIENT
  Age: 59 Year
  Sex: Female

DRUGS (1)
  1. NEXIUM [Suspect]
     Route: 048

REACTIONS (5)
  - Fibromyalgia [Unknown]
  - Multiple allergies [Unknown]
  - Nasopharyngitis [Unknown]
  - Malaise [Unknown]
  - Intentional drug misuse [Unknown]
